FAERS Safety Report 5897395-9 (Version None)
Quarter: 2008Q3

REPORT INFORMATION
  Report Type: 
  Country: None (occurrence: None)
  Receive Date: 20080925
  Receipt Date: 20080917
  Transmission Date: 20090109
  Serious: Yes (Other)
  Sender: FDA-Public Use
  Company Number: US-JNJFOC-20080403915

PATIENT
  Sex: Female
  Weight: 120.66 kg

DRUGS (2)
  1. DURAGESIC-100 [Suspect]
     Indication: DRUG USE FOR UNKNOWN INDICATION
     Route: 062
  2. HERBAL MEDICINES [Concomitant]

REACTIONS (3)
  - DRUG DOSE OMISSION [None]
  - PAIN [None]
  - SUICIDAL IDEATION [None]
